FAERS Safety Report 11983207 (Version 1)
Quarter: 2016Q1

REPORT INFORMATION
  Report Type: Report from Study
  Country: PL (occurrence: PL)
  Receive Date: 20160201
  Receipt Date: 20160201
  Transmission Date: 20160526
  Serious: Yes (Hospitalization, Other)
  Sender: FDA-Public Use
  Company Number: PHHY2016PL009441

PATIENT
  Age: 78 Year
  Sex: Male

DRUGS (1)
  1. NILOTINIB [Suspect]
     Active Substance: NILOTINIB
     Indication: CHRONIC MYELOID LEUKAEMIA
     Dosage: 600 MG, QD (PER DAY)
     Route: 065
     Dates: start: 201201, end: 201511

REACTIONS (11)
  - Pleural effusion [Unknown]
  - Myocardial ischaemia [Unknown]
  - Night sweats [Unknown]
  - Asthenia [Unknown]
  - Hypertension [Unknown]
  - Ischaemic cardiomyopathy [Unknown]
  - Weight decreased [Unknown]
  - Cardiovascular disorder [Unknown]
  - Dyspnoea [Unknown]
  - Cardiac failure chronic [Unknown]
  - General physical health deterioration [Unknown]

NARRATIVE: CASE EVENT DATE: 2014
